FAERS Safety Report 4817646-9 (Version None)
Quarter: 2005Q3

REPORT INFORMATION
  Report Type: 
  Country: None (occurrence: None)
  Receive Date: 20050929
  Receipt Date: 20050720
  Transmission Date: 20060218
  Serious: No
  Sender: FDA-Public Use
  Company Number: 04P-163-0252701-00

PATIENT
  Age: 66 Year
  Sex: Female

DRUGS (12)
  1. HUMIRA [Suspect]
     Indication: RHEUMATOID ARTHRITIS
     Dosage: 40 MG, 1 IN 2 WK, SUBCUTANEOUS; 40 MG, 1 IN 2 WK, SUBCUTANEOUS
     Route: 058
     Dates: start: 20040209, end: 20050501
  2. HUMIRA [Suspect]
     Indication: RHEUMATOID ARTHRITIS
     Dosage: 40 MG, 1 IN 2 WK, SUBCUTANEOUS; 40 MG, 1 IN 2 WK, SUBCUTANEOUS
     Route: 058
     Dates: start: 20050627
  3. METHOTREXATE SODIUM [Concomitant]
  4. FOLIC ACID [Concomitant]
  5. MELOXICAM [Concomitant]
  6. ESTROGENS CONJUGATED [Concomitant]
  7. SULFASALAZINE [Concomitant]
  8. ASPIRIN [Concomitant]
  9. FOLIC ACID [Concomitant]
  10. HYDROCODONE [Concomitant]
  11. MELOXICAM [Concomitant]
  12. DIPHENHYDRAMINE HCL [Concomitant]

REACTIONS (6)
  - ARTHRALGIA [None]
  - HERPES ZOSTER [None]
  - INJECTION SITE BRUISING [None]
  - INJECTION SITE HAEMORRHAGE [None]
  - INJECTION SITE IRRITATION [None]
  - OEDEMA PERIPHERAL [None]
